FAERS Safety Report 9148670 (Version 1)
Quarter: 2013Q1

REPORT INFORMATION
  Report Type: Spontaneous
  Country: CA (occurrence: CA)
  Receive Date: 20130308
  Receipt Date: 20130308
  Transmission Date: 20140127
  Serious: Yes (Hospitalization)
  Sender: FDA-Public Use
  Company Number: CA-AMGEN-CANSP2013013789

PATIENT
  Age: 75 Year
  Sex: Female

DRUGS (2)
  1. SENSIPAR [Suspect]
     Indication: RENAL FAILURE CHRONIC
     Dates: start: 200501
  2. SENSIPAR [Suspect]
     Indication: HYPERPARATHYROIDISM SECONDARY

REACTIONS (4)
  - Fall [Unknown]
  - Lower limb fracture [Recovered/Resolved]
  - Wrist fracture [Recovered/Resolved]
  - Nephrectomy [Recovered/Resolved]
